FAERS Safety Report 16780280 (Version 3)
Quarter: 2020Q2

REPORT INFORMATION
  Report Type: Spontaneous
  Country: US (occurrence: US)
  Receive Date: 20190906
  Receipt Date: 20200603
  Transmission Date: 20200713
  Serious: No
  Sender: FDA-Public Use
  Company Number: US-GILEAD-2019-0426578

PATIENT
  Age: 20 Year
  Sex: Male
  Weight: 56.51 kg

DRUGS (22)
  1. MVI [VITAMINS NOS] [Concomitant]
  2. CLARITIN-D NOS [Concomitant]
     Active Substance: LORATADINE\PSEUDOEPHEDRINE SULFATE
  3. CITALOPRAM [Concomitant]
     Active Substance: CITALOPRAM HYDROBROMIDE
  4. ATRIPLA [Suspect]
     Active Substance: EFAVIRENZ\EMTRICITABINE\TENOFOVIR DISOPROXIL FUMARATE
     Indication: HIV INFECTION
     Dosage: UNK
     Route: 048
     Dates: start: 200607, end: 2015
  5. COMBIVIR [Concomitant]
     Active Substance: LAMIVUDINE\ZIDOVUDINE
  6. ONDANSETRON [Concomitant]
     Active Substance: ONDANSETRON
  7. TRIAMCINOLONE [Concomitant]
     Active Substance: TRIAMCINOLONE
  8. NEUPOGEN [Concomitant]
     Active Substance: FILGRASTIM
  9. IBUPROFEN. [Concomitant]
     Active Substance: IBUPROFEN
  10. CENTRUM PLUS [Concomitant]
     Active Substance: VITAMINS
  11. PROZAC [Concomitant]
     Active Substance: FLUOXETINE HYDROCHLORIDE
  12. EUCERIN [UREA] [Concomitant]
  13. RIBAVIRIN. [Concomitant]
     Active Substance: RIBAVIRIN
  14. DEBROX [Concomitant]
     Active Substance: CARBAMIDE PEROXIDE
  15. KALETRA [Concomitant]
     Active Substance: LOPINAVIR\RITONAVIR
  16. MEGACE [Concomitant]
     Active Substance: MEGESTROL ACETATE
  17. AMOXICILLIN. [Concomitant]
     Active Substance: AMOXICILLIN
  18. ZOFRAN [Concomitant]
     Active Substance: ONDANSETRON HYDROCHLORIDE
  19. PSEUDOEPHEDRINE. [Concomitant]
     Active Substance: PSEUDOEPHEDRINE HYDROCHLORIDE
  20. MEDERMA [Concomitant]
     Active Substance: AVOBENZONE\OCTOCRYLENE\OXYBENZONE
  21. BOOST [Concomitant]
     Active Substance: DIETARY SUPPLEMENT
  22. PHENERGAN [Concomitant]
     Active Substance: PROMETHAZINE HYDROCHLORIDE

REACTIONS (8)
  - Economic problem [Unknown]
  - Anxiety [Unknown]
  - Bone density decreased [Unknown]
  - Pain [Unknown]
  - Bone loss [Not Recovered/Not Resolved]
  - Osteopenia [Not Recovered/Not Resolved]
  - Emotional distress [Unknown]
  - Anhedonia [Unknown]

NARRATIVE: CASE EVENT DATE: 20061016
